FAERS Safety Report 9121196 (Version 2)
Quarter: 2013Q1

REPORT INFORMATION
  Report Type: Spontaneous
  Country: CA (occurrence: CA)
  Receive Date: 20130225
  Receipt Date: 20130318
  Transmission Date: 20140127
  Serious: Yes (Death, Hospitalization, Other)
  Sender: FDA-Public Use
  Company Number: CA-PFIZER INC-2004238366CA

PATIENT
  Age: 83 Year
  Sex: Male
  Weight: 74 kg

DRUGS (7)
  1. CELEBREX [Suspect]
     Indication: ARTHRITIS
     Dosage: 200 MG, 1X/DAY
     Route: 048
     Dates: start: 20040712
  2. VASOTEC [Concomitant]
     Indication: HYPERTENSION
     Dosage: 5 MG, 2X/DAY
     Route: 048
     Dates: start: 2003, end: 20040711
  3. PMS-METOPROLOL [Concomitant]
     Indication: HYPERTENSION
     Dosage: 50 MG, 2X/DAY
     Route: 048
     Dates: start: 2003, end: 20040711
  4. ACETYLSALICYLIC ACID [Concomitant]
     Indication: HYPERTENSION
     Dosage: UNK
     Route: 048
     Dates: start: 2003, end: 20040711
  5. LAMISIL [Concomitant]
     Dosage: 250 MG, 1X/DAY
     Route: 048
     Dates: start: 20040303
  6. APO-HYDRO [Concomitant]
     Dosage: 25 MG, 1X/DAY
     Route: 048
     Dates: start: 20040616
  7. MYLAN-BECLO AQ [Concomitant]
     Dosage: 50 UG,  TWICE DAILY AS NEEDED
     Dates: start: 20040629

REACTIONS (5)
  - Circulatory collapse [Fatal]
  - Thrombosis [Fatal]
  - Malaise [Unknown]
  - Fatigue [Unknown]
  - Decreased appetite [Unknown]
